FAERS Safety Report 20321331 (Version 2)
Quarter: 2023Q1

REPORT INFORMATION
  Report Type: Spontaneous
  Country: PL (occurrence: PL)
  Receive Date: 20220111
  Receipt Date: 20230105
  Transmission Date: 20230418
  Serious: Yes (Other)
  Sender: FDA-Public Use
  Company Number: PL-MLMSERVICE-20211209-3264120-1

PATIENT
  Age: 47 Year
  Sex: Male

DRUGS (1)
  1. QUETIAPINE [Suspect]
     Active Substance: QUETIAPINE
     Indication: Schizophrenia
     Dosage: 600 MILLIGRAM (PROLONGED-RELEASE TABLETS)
     Route: 065
     Dates: start: 2012

REACTIONS (1)
  - Male sexual dysfunction [Recovering/Resolving]

NARRATIVE: CASE EVENT DATE: 20190101
